FAERS Safety Report 8670306 (Version 2)
Quarter: 2015Q2

REPORT INFORMATION
  Report Type: Report from Study
  Country: US (occurrence: US)
  Receive Date: 20120718
  Receipt Date: 20150629
  Transmission Date: 20150821
  Serious: Yes (Death)
  Sender: FDA-Public Use
  Company Number: US-ROCHE-1087366

PATIENT
  Sex: Male

DRUGS (2)
  1. LUCENTIS [Suspect]
     Active Substance: RANIBIZUMAB
     Indication: NEOVASCULAR AGE-RELATED MACULAR DEGENERATION
     Route: 050
  2. ZYMAR [Concomitant]
     Active Substance: GATIFLOXACIN
     Dosage: 2 DAYS BEFORE INJECTION AND 5 DAYS AFTER INJECTION
     Route: 065

REACTIONS (1)
  - Death [Fatal]
